FAERS Safety Report 6719004-9 (Version None)
Quarter: 2010Q2

REPORT INFORMATION
  Report Type: 
  Country: None (occurrence: None)
  Receive Date: 20100507
  Receipt Date: 20100422
  Transmission Date: 20101027
  Serious: Yes (Hospitalization)
  Sender: FDA-Public Use
  Company Number: 011160

PATIENT
  Sex: Female
  Weight: 135.3 kg

DRUGS (22)
  1. CERTOLIZUMAB PEGOL [Suspect]
     Indication: RHEUMATOID ARTHRITIS
     Dosage: (200 MG 1X/2 WEEKS SUBCUTANEOUS)
     Route: 058
     Dates: start: 20091123, end: 20100210
  2. RELAFEN [Concomitant]
  3. NEXIUM [Concomitant]
  4. SYNTHROID [Concomitant]
  5. EFFEXOR [Concomitant]
  6. BUSPAR [Concomitant]
  7. L-LYSINE /00919901/ [Concomitant]
  8. TRIAMCINOLONE [Concomitant]
  9. ACYCLOVIR [Concomitant]
  10. FLEXERIL [Concomitant]
  11. GABAPENTIN [Concomitant]
  12. LYRICA [Concomitant]
  13. CALCIUM CARBONATE [Concomitant]
  14. PHENERGAN HCL [Concomitant]
  15. POLYSPORIN /00259001/ [Concomitant]
  16. PREDNISONE TAB [Concomitant]
  17. SINGULAIR [Concomitant]
  18. VOLTAREN EMULGEL /00372301/ [Concomitant]
  19. BISOLVON AMOXYCILINA [Concomitant]
  20. LEVAQUIN [Concomitant]
  21. ASCORBIC ACID [Concomitant]
  22. FOLIC ACID [Concomitant]

REACTIONS (1)
  - PNEUMONIA [None]
